FAERS Safety Report 16010065 (Version 1)
Quarter: 2019Q1

REPORT INFORMATION
  Report Type: Spontaneous
  Country: US (occurrence: US)
  Receive Date: 20190225
  Receipt Date: 20190225
  Transmission Date: 20190418
  Serious: Yes (Other)
  Sender: FDA-Public Use
  Company Number: US-TEVA-2019-US-1014288

PATIENT
  Age: 74 Year
  Sex: Female

DRUGS (11)
  1. VIATAMIN D [Concomitant]
     Route: 065
  2. NOTRIPTYLINE [Concomitant]
     Route: 065
  3. PROCHLORPERAZINE. [Concomitant]
     Active Substance: PROCHLORPERAZINE
     Route: 065
  4. DULOXETINE. [Concomitant]
     Active Substance: DULOXETINE
     Route: 065
  5. TURMERIC [Concomitant]
     Active Substance: HERBALS\TURMERIC
     Route: 065
  6. CYCLOPHOSPHAMIDE. [Concomitant]
     Active Substance: CYCLOPHOSPHAMIDE
     Route: 065
  7. ADRIAMYCIN [Concomitant]
     Active Substance: DOXORUBICIN HYDROCHLORIDE
     Route: 065
  8. MYRBETRIQ [Concomitant]
     Active Substance: MIRABEGRON
     Route: 065
  9. ONDANSETRON [Concomitant]
     Active Substance: ONDANSETRON
     Route: 065
  10. VITAMIN B12 [Concomitant]
     Active Substance: CYANOCOBALAMIN
     Route: 065
  11. COPAXONE [Suspect]
     Active Substance: GLATIRAMER ACETATE
     Indication: MULTIPLE SCLEROSIS
     Route: 058
     Dates: start: 20180510, end: 201812

REACTIONS (2)
  - Hypoaesthesia [Not Recovered/Not Resolved]
  - Breast cancer [Not Recovered/Not Resolved]

NARRATIVE: CASE EVENT DATE: 201812
